FAERS Safety Report 24308300 (Version 2)
Quarter: 2024Q3

REPORT INFORMATION
  Report Type: Report from Study
  Country: IT (occurrence: IT)
  Receive Date: 20240911
  Receipt Date: 20240918
  Transmission Date: 20241016
  Serious: No
  Sender: SANDOZ
  Company Number: IT-SANDOZ-SDZ2024IT078871

PATIENT
  Age: 13 Year
  Sex: Male
  Weight: 46 kg

DRUGS (1)
  1. SOMATROPIN [Suspect]
     Active Substance: SOMATROPIN
     Indication: Growth hormone deficiency
     Dosage: 1.6 MG, QD
     Route: 058
     Dates: start: 20221010

REACTIONS (2)
  - Drug dose omission by device [Unknown]
  - Device issue [Unknown]

NARRATIVE: CASE EVENT DATE: 20240903
